FAERS Safety Report 7794754-4 (Version None)
Quarter: 2011Q4

REPORT INFORMATION
  Report Type: 
  Country: None (occurrence: None)
  Receive Date: 20111004
  Receipt Date: 20110929
  Transmission Date: 20120403
  Serious: No
  Sender: FDA-Public Use
  Company Number: US-PFIZER INC-2011233393

PATIENT
  Sex: Female
  Weight: 55.3 kg

DRUGS (4)
  1. ADVIL ALLERGY SINUS [Suspect]
     Indication: SINUS DISORDER
     Dosage: UNK, AS NEEDED
     Route: 065
  2. FISH OIL [Concomitant]
     Dosage: UNK
  3. CALCIUM [Concomitant]
     Dosage: 750 UNK, UNK
  4. VITAMIN D [Concomitant]
     Dosage: 1000 IU, UNK

REACTIONS (1)
  - SKIN DISCOLOURATION [None]
